FAERS Safety Report 24033362 (Version 1)
Quarter: 2024Q3

REPORT INFORMATION
  Report Type: Report from Study
  Country: DE (occurrence: DE)
  Receive Date: 20240701
  Receipt Date: 20240701
  Transmission Date: 20241017
  Serious: No
  Sender: ROCHE
  Company Number: DE-ROCHE-3165477

PATIENT
  Age: 38 Year
  Sex: Female
  Weight: 45.0 kg

DRUGS (3)
  1. EVRYSDI [Suspect]
     Active Substance: RISDIPLAM
     Indication: Spinal muscular atrophy
     Dosage: ON 07/JAN/2022, 11/AUG/2023, 03/APR/2024 SHE RECEIVED LAST DOSE OF RISDIPLAM.
     Route: 048
     Dates: start: 20210413
  2. PANTOPRAZOLE [Concomitant]
     Active Substance: PANTOPRAZOLE
  3. IBUPROFEN [Concomitant]
     Active Substance: IBUPROFEN
     Dates: start: 202401

REACTIONS (7)
  - Headache [Recovered/Resolved]
  - Respiratory tract infection [Not Recovered/Not Resolved]
  - Cystitis [Recovered/Resolved]
  - Acute sinusitis [Not Recovered/Not Resolved]
  - Skin irritation [Recovered/Resolved]
  - Rash [Recovered/Resolved]
  - Pulpitis dental [Recovered/Resolved]

NARRATIVE: CASE EVENT DATE: 20211101
